FAERS Safety Report 6075362-2 (Version None)
Quarter: 2009Q1

REPORT INFORMATION
  Report Type: 
  Country: None (occurrence: None)
  Receive Date: 20090210
  Receipt Date: 20090126
  Transmission Date: 20090719
  Serious: Yes (Hospitalization)
  Sender: FDA-Public Use
  Company Number: 2009000248

PATIENT
  Age: 76 Year
  Sex: Male

DRUGS (16)
  1. ERLOTINIB (ERLOTINIB) (TABLET) (ERLOTINIB) [Suspect]
     Indication: OESOPHAGEAL CARCINOMA
     Dosage: 100 MG, QD, ORAL
     Route: 048
     Dates: start: 20081230
  2. BEVACIZUMAB          (INJECTION FOR INFUSION) [Suspect]
     Dosage: 15 MG/KG; INTRAVENOUS
     Dates: start: 20081230
  3. PACLITAXEL [Suspect]
     Dosage: 200 MG/M2; INTRAVENOUS
     Route: 042
     Dates: start: 20081230
  4. CARBOPLATIN [Suspect]
     Dosage: 5; INTRAVENOUS
     Route: 042
     Dates: start: 20081230
  5. FLUOROURACIL [Suspect]
     Dosage: 225 MG/M2; INTRAVENOUS
     Route: 042
     Dates: start: 20081230
  6. INSULIN (INSULIN) [Concomitant]
  7. EXELON [Concomitant]
  8. ASPIRIN [Concomitant]
  9. GLUCOTROL [Concomitant]
  10. ACETAMINOPHEN [Concomitant]
  11. XANAX [Concomitant]
  12. BISACODYL (BISACODYL) [Concomitant]
  13. DOCUSATE      (DOCUSATE) [Concomitant]
  14. PROTONIX [Concomitant]
  15. PHENERGAN HCL [Concomitant]
  16. AMBIEN [Concomitant]

REACTIONS (3)
  - ANAEMIA [None]
  - FEBRILE NEUTROPENIA [None]
  - PLATELET COUNT DECREASED [None]
